FAERS Safety Report 4308555-2 (Version None)
Quarter: 2004Q1

REPORT INFORMATION
  Report Type: 
  Country: None (occurrence: None)
  Receive Date: 20040227
  Receipt Date: 20040217
  Transmission Date: 20041129
  Serious: Yes (Other)
  Sender: FDA-Public Use
  Company Number: NSADSS2002032397

PATIENT
  Age: 76 Year
  Sex: Female
  Weight: 57.6068 kg

DRUGS (7)
  1. REMICADE [Suspect]
     Indication: RHEUMATOID ARTHRITIS
     Dosage: 200 MG, INTRAVENOUS DRIP
     Route: 041
     Dates: start: 20020822, end: 20020822
  2. REMICADE [Suspect]
     Indication: RHEUMATOID ARTHRITIS
     Dosage: 200 MG, INTRAVENOUS DRIP
     Route: 041
     Dates: start: 20020516
  3. REMICADE [Suspect]
     Indication: RHEUMATOID ARTHRITIS
     Dosage: 200 MG, INTRAVENOUS DRIP
     Route: 041
     Dates: start: 20020530
  4. REMICADE [Suspect]
     Indication: RHEUMATOID ARTHRITIS
     Dosage: 200 MG, INTRAVENOUS DRIP
     Route: 041
     Dates: start: 20020627
  5. ARAVA [Concomitant]
  6. VIOXX [Concomitant]
  7. METHOTREXATE [Concomitant]

REACTIONS (4)
  - ANGIONEUROTIC OEDEMA [None]
  - COCCIDIOIDOMYCOSIS [None]
  - LOBAR PNEUMONIA [None]
  - PNEUMONITIS [None]
